FAERS Safety Report 11253327 (Version 1)
Quarter: 2015Q3

REPORT INFORMATION
  Report Type: Spontaneous
  Country: US (occurrence: US)
  Receive Date: 20150709
  Receipt Date: 20150709
  Transmission Date: 20151125
  Serious: Yes (Other)
  Sender: FDA-Public Use
  Company Number: US-TEVA-499242USA

PATIENT
  Age: 34 Year

DRUGS (1)
  1. LEVOFLOXACIN TABLETS, 250 MG, 500 MG AND 750 MG [Suspect]
     Active Substance: LEVOFLOXACIN
     Indication: SINUSITIS
     Dosage: 750 MILLIGRAM DAILY;
     Dates: start: 201308

REACTIONS (7)
  - Dizziness [Recovered/Resolved]
  - Intervertebral disc protrusion [Unknown]
  - Vertigo [Recovered/Resolved]
  - Arthritis [Unknown]
  - Tendon rupture [Recovering/Resolving]
  - Heart rate increased [Recovered/Resolved]
  - Pain in extremity [Unknown]

NARRATIVE: CASE EVENT DATE: 201308
